FAERS Safety Report 20154598 (Version 1)
Quarter: 2021Q4

REPORT INFORMATION
  Report Type: Other
  Country: CA (occurrence: CA)
  Receive Date: 20211207
  Receipt Date: 20211207
  Transmission Date: 20220303
  Serious: Yes (Hospitalization, Other)
  Sender: FDA-Public Use
  Company Number: CA-APOTEX-2021AP045894

PATIENT
  Sex: Female

DRUGS (4)
  1. FILGRASTIM [Suspect]
     Active Substance: FILGRASTIM
     Indication: Colon cancer
     Dosage: 300MCG/0.5ML X 7 DOSES
     Route: 058
     Dates: start: 20200110
  2. FILGRASTIM [Suspect]
     Active Substance: FILGRASTIM
     Indication: Hepatic cancer
  3. FILGRASTIM [Suspect]
     Active Substance: FILGRASTIM
     Indication: Lung neoplasm malignant
  4. FILGRASTIM [Suspect]
     Active Substance: FILGRASTIM
     Indication: Thyroid cancer

REACTIONS (1)
  - Pneumonia [Recovering/Resolving]
